FAERS Safety Report 10094328 (Version 2)
Quarter: 2014Q2

REPORT INFORMATION
  Report Type: Spontaneous
  Country: US (occurrence: US)
  Receive Date: 20140422
  Receipt Date: 20140422
  Transmission Date: 20141212
  Serious: Yes (Hospitalization)
  Sender: FDA-Public Use
  Company Number: US-BRISTOL-MYERS SQUIBB COMPANY-19000777

PATIENT
  Age: 65 Year
  Sex: Female
  Weight: 71.6 kg

DRUGS (1)
  1. HYDROXYUREA [Suspect]
     Indication: CHRONIC MYELOID LEUKAEMIA
     Dosage: REDUCED TO 500MG ON 27SEP2012
     Route: 048
     Dates: start: 201209, end: 20121001

REACTIONS (1)
  - White blood cell count decreased [Unknown]
